FAERS Safety Report 10410695 (Version 1)
Quarter: 2014Q3

REPORT INFORMATION
  Report Type: Report from Study
  Country: ZA (occurrence: ZA)
  Receive Date: 20140826
  Receipt Date: 20140826
  Transmission Date: 20150326
  Serious: Yes (Life-Threatening)
  Sender: FDA-Public Use
  Company Number: PHHY2014ZA103235

PATIENT
  Age: 53 Year
  Sex: Female

DRUGS (7)
  1. MENACAL7 [Concomitant]
     Dosage: UNK UKN, UNK
  2. VITAMINS NOS [Concomitant]
     Active Substance: VITAMINS
     Dosage: UNK UKN, UNK
  3. ACLASTA [Suspect]
     Active Substance: ZOLEDRONIC ACID
     Indication: OSTEOPOROSIS
     Dosage: 5 MG/100 ML
     Route: 042
     Dates: start: 20140808
  4. MYPRODOL [Concomitant]
     Active Substance: ACETAMINOPHEN\CODEINE\IBUPROFEN
     Indication: PAIN
     Dosage: UNK UKN, UNK
  5. VITAMIN D [Concomitant]
     Active Substance: CHOLECALCIFEROL
     Dosage: UNK UKN, UNK
  6. BRUFEN//IBUPROFEN [Concomitant]
     Dosage: UNK UKN, UNK
  7. DISPRIN [Concomitant]
     Active Substance: ASPIRIN
     Indication: MUSCLE SPASMS
     Dosage: UNK UKN, UNK

REACTIONS (11)
  - Lymphadenopathy [Unknown]
  - Dyspnoea [Unknown]
  - Muscle spasms [Unknown]
  - Nausea [Unknown]
  - Musculoskeletal chest pain [Not Recovered/Not Resolved]
  - Mobility decreased [Unknown]
  - Dizziness [Unknown]
  - Feeling abnormal [Unknown]
  - Influenza like illness [Unknown]
  - Back pain [Unknown]
  - Crying [Unknown]

NARRATIVE: CASE EVENT DATE: 20140808
